FAERS Safety Report 8458105-4 (Version None)
Quarter: 2012Q2

REPORT INFORMATION
  Report Type: 
  Country: None (occurrence: None)
  Receive Date: 20120622
  Receipt Date: 20120612
  Transmission Date: 20120825
  Serious: Yes (Other)
  Sender: FDA-Public Use
  Company Number: CA-JNJFOC-20120605998

PATIENT
  Sex: Female
  Weight: 76 kg

DRUGS (5)
  1. FOLIC ACID [Concomitant]
     Route: 065
  2. REMICADE [Suspect]
     Indication: RHEUMATOID ARTHRITIS
     Route: 042
     Dates: start: 20040610
  3. SYNTHROID [Concomitant]
     Route: 065
  4. METHOTREXATE [Concomitant]
     Route: 065
  5. VITAMIN D [Concomitant]
     Route: 065

REACTIONS (1)
  - ATRIAL FIBRILLATION [None]
